FAERS Safety Report 11629858 (Version 1)
Quarter: 2015Q4

REPORT INFORMATION
  Report Type: Spontaneous
  Country: US (occurrence: US)
  Receive Date: 20151014
  Receipt Date: 20151014
  Transmission Date: 20160304
  Serious: Yes (Other)
  Sender: FDA-Public Use
  Company Number: US-PFIZER INC-2015339233

PATIENT
  Age: 64 Year
  Sex: Male
  Weight: 147 kg

DRUGS (2)
  1. CELEBREX [Suspect]
     Active Substance: CELECOXIB
     Indication: KNEE OPERATION
     Dosage: 200 MG ONCE DAILY AND TWICE A DAY
     Dates: start: 201410
  2. CELEBREX [Suspect]
     Active Substance: CELECOXIB
     Dosage: 200 MG ONCE DAILY AND TWICE A DAY
     Dates: start: 201410

REACTIONS (2)
  - Insomnia [Not Recovered/Not Resolved]
  - Dyspnoea [Not Recovered/Not Resolved]

NARRATIVE: CASE EVENT DATE: 2015
